FAERS Safety Report 5014751-1 (Version None)
Quarter: 2006Q2

REPORT INFORMATION
  Report Type: 
  Country: None (occurrence: None)
  Receive Date: 20060531
  Receipt Date: 20060519
  Transmission Date: 20061013
  Serious: Yes (Hospitalization)
  Sender: FDA-Public Use
  Company Number: US-BRISTOL-MYERS SQUIBB COMPANY-13383666

PATIENT
  Age: 57 Year
  Sex: Male
  Weight: 84 kg

DRUGS (11)
  1. PACLITAXEL [Suspect]
     Indication: NON-SMALL CELL LUNG CANCER
     Route: 042
     Dates: start: 20060323, end: 20060323
  2. CARBOPLATIN [Suspect]
     Indication: NON-SMALL CELL LUNG CANCER
     Route: 042
     Dates: start: 20060323, end: 20060323
  3. ATROVENT [Concomitant]
     Dates: start: 20060315
  4. REGLAN [Concomitant]
     Dates: start: 20060324, end: 20060326
  5. PHENERGAN HCL [Concomitant]
     Dates: start: 20060324, end: 20060327
  6. CYCLOBENZAPRINE HCL [Concomitant]
     Dates: start: 20060315, end: 20060331
  7. LORTAB [Concomitant]
     Dates: start: 20060315, end: 20060331
  8. NAPROXEN [Concomitant]
     Dates: start: 20060315
  9. PROTONIX [Concomitant]
     Dates: start: 20060315
  10. ALBUTEROL SULFATE AUTOHALER [Concomitant]
     Dates: start: 20060315
  11. ACIDOPHILUS [Concomitant]

REACTIONS (3)
  - ARTHRALGIA [None]
  - NAUSEA [None]
  - VOMITING [None]
